FAERS Safety Report 5476845-6 (Version None)
Quarter: 2007Q4

REPORT INFORMATION
  Report Type: 
  Country: None (occurrence: None)
  Receive Date: 20071004
  Receipt Date: 20070924
  Transmission Date: 20080405
  Serious: Yes (Death)
  Sender: FDA-Public Use
  Company Number: US-ROCHE-512050

PATIENT
  Age: 42 Year
  Sex: Male
  Weight: 116.6 kg

DRUGS (2)
  1. XELODA [Suspect]
     Indication: DRUG USE FOR UNKNOWN INDICATION
     Dosage: REPORTED AS 2 WEEKS ON AND 1 WEEK OFF.
     Route: 048
     Dates: start: 20070112, end: 20070327
  2. XELODA [Suspect]
     Dosage: REPORTED AS 2 WEEKS ON AND 2 WEEKS OFF.
     Route: 048
     Dates: start: 20070327, end: 20070425

REACTIONS (3)
  - ORAL MUCOSAL BLISTERING [None]
  - PALMAR-PLANTAR ERYTHRODYSAESTHESIA SYNDROME [None]
  - PANCREATIC CARCINOMA METASTATIC [None]
